FAERS Safety Report 6160278-3 (Version None)
Quarter: 2009Q2

REPORT INFORMATION
  Report Type: 
  Country: None (occurrence: None)
  Receive Date: 20090416
  Receipt Date: 20090413
  Transmission Date: 20091009
  Serious: Yes (Death)
  Sender: FDA-Public Use
  Company Number: 2009SP007807

PATIENT
  Age: 63 Year
  Sex: Male

DRUGS (3)
  1. TEMOZOLOMIDE [Suspect]
     Indication: DRUG USE FOR UNKNOWN INDICATION
     Dosage: PO
     Route: 048
  2. CELEBREX [Suspect]
     Indication: ARTHRITIS
  3. THALIDOMIDE [Suspect]
     Indication: BRAIN NEOPLASM
     Dosage: 400 MG; QD; PO
     Route: 048
     Dates: start: 20040622, end: 20040827

REACTIONS (4)
  - DISEASE PROGRESSION [None]
  - DIVERTICULITIS [None]
  - RENAL FAILURE [None]
  - SEPSIS [None]
